FAERS Safety Report 9298203 (Version 3)
Quarter: 2013Q4

REPORT INFORMATION
  Report Type: Spontaneous
  Country: AR (occurrence: AR)
  Receive Date: 20130520
  Receipt Date: 20131205
  Transmission Date: 20140711
  Serious: Yes (Other)
  Sender: FDA-Public Use
  Company Number: AR-AMGEN-ARGSP2013034924

PATIENT
  Age: 27 Year
  Sex: Female

DRUGS (5)
  1. ENBREL [Suspect]
     Dosage: 25 MG, EVERY 15 DAYS
     Route: 065
     Dates: start: 201106, end: 201112
  2. ARTRAIT                            /00113801/ [Concomitant]
     Indication: RHEUMATOID ARTHRITIS
     Dosage: UNK UNK, QWK
  3. LEFLUNOMIDE [Concomitant]
     Dosage: UNK
  4. ENBREL [Suspect]
     Indication: RHEUMATOID ARTHRITIS
     Dosage: 50 MG, WEEKLY
     Route: 065
     Dates: start: 20090417
  5. ENBREL [Suspect]
     Dosage: 25 MG, WEEKLY
     Route: 065

REACTIONS (1)
  - Abortion spontaneous [Recovered/Resolved]
